FAERS Safety Report 15613779 (Version 1)
Quarter: 2018Q4

REPORT INFORMATION
  Report Type: Report from Study
  Country: US (occurrence: US)
  Receive Date: 20181113
  Receipt Date: 20181113
  Transmission Date: 20190205
  Serious: Yes (Hospitalization, Other)
  Sender: FDA-Public Use
  Company Number: US-PFIZER INC-2017043224

PATIENT
  Age: 75 Year
  Sex: Female
  Weight: 67.13 kg

DRUGS (4)
  1. IBRANCE [Suspect]
     Active Substance: PALBOCICLIB
     Dosage: 125MG CYCLIC, (ONCE A DAY FOR 21 DAYS AND THEN 7 DAYS OFF)
     Route: 048
     Dates: start: 20160901
  2. TAMOXIFEN [Suspect]
     Active Substance: TAMOXIFEN
     Dosage: UNK, DAILY
  3. IBRANCE [Suspect]
     Active Substance: PALBOCICLIB
     Indication: BREAST CANCER
     Dosage: 125 MG, DAILY
     Route: 048
     Dates: start: 20161103
  4. IBRANCE [Suspect]
     Active Substance: PALBOCICLIB
     Dosage: 100 MG, 1X/DAY

REACTIONS (9)
  - Blood test abnormal [Recovered/Resolved]
  - Condition aggravated [Not Recovered/Not Resolved]
  - Localised infection [Recovered/Resolved]
  - Stomatitis [Recovered/Resolved]
  - Diarrhoea [Unknown]
  - Full blood count decreased [Unknown]
  - Fatigue [Not Recovered/Not Resolved]
  - Nasopharyngitis [Not Recovered/Not Resolved]
  - Neuropathy peripheral [Not Recovered/Not Resolved]

NARRATIVE: CASE EVENT DATE: 20171114
